FAERS Safety Report 8348360-3 (Version None)
Quarter: 2012Q2

REPORT INFORMATION
  Report Type: 
  Country: None (occurrence: None)
  Receive Date: 20120509
  Receipt Date: 20120508
  Transmission Date: 20120825
  Serious: Yes (Other)
  Sender: FDA-Public Use
  Company Number: IL-ROCHE-794023

PATIENT
  Age: 60 Year
  Sex: Female

DRUGS (2)
  1. AVASTIN [Suspect]
     Indication: OVARIAN CANCER
  2. DOXORUBICIN HCL [Concomitant]
     Indication: OVARIAN CANCER

REACTIONS (3)
  - DISEASE PROGRESSION [None]
  - BLOOD PRESSURE INCREASED [None]
  - RASH [None]
